FAERS Safety Report 18271938 (Version 1)
Quarter: 2020Q3

REPORT INFORMATION
  Report Type: Spontaneous
  Country: NL (occurrence: NL)
  Receive Date: 20200916
  Receipt Date: 20200916
  Transmission Date: 20201103
  Serious: Yes (Other)
  Sender: FDA-Public Use
  Company Number: NL-AUROBINDO-AUR-APL-2017-04189

PATIENT
  Age: 64 Year
  Sex: Female

DRUGS (4)
  1. FUROSEMIDE. [Suspect]
     Active Substance: FUROSEMIDE
     Dosage: 500 MILLIGRAM, EVERY MORNING
     Route: 048
  2. SEVELAMER [Interacting]
     Active Substance: SEVELAMER
     Indication: HYPERPHOSPHATAEMIA
     Dosage: 800 MG, AT BREAKFAST AND LUNCHTIME, 1600 MG AT DINNER
     Route: 048
  3. SEVELAMER [Interacting]
     Active Substance: SEVELAMER
     Dosage: 1600 MILLIGRAM, TWO TIMES A DAY, AT LUNCH, DINNER TIME
     Route: 048
  4. FUROSEMIDE. [Suspect]
     Active Substance: FUROSEMIDE
     Indication: PRODUCT USED FOR UNKNOWN INDICATION
     Dosage: 250 MILLIGRAM, TWO TIMES A DAY
     Route: 065

REACTIONS (3)
  - Urine output decreased [Recovered/Resolved]
  - Drug interaction [Unknown]
  - Anuria [Recovered/Resolved]

NARRATIVE: CASE EVENT DATE: 2005
